FAERS Safety Report 11059752 (Version 5)
Quarter: 2016Q1

REPORT INFORMATION
  Report Type: Report from Study
  Country: US (occurrence: None)
  Receive Date: 20150422
  Receipt Date: 20160115
  Transmission Date: 20160525
  Serious: Yes (Death, Other)
  Sender: FDA-Public Use
  Company Number: ADR-2015-00756

PATIENT
  Age: 59 Year
  Sex: Female

DRUGS (2)
  1. DILAUDID [Suspect]
     Active Substance: HYDROMORPHONE HYDROCHLORIDE
     Dosage: 0.6496 MG/DAY
  2. COMPOUNDED BACLOFEN INTRATHECAL 150 MCG/ML [Suspect]
     Active Substance: BACLOFEN
     Indication: COLON CANCER
     Dosage: 97.45 MCG/DAY

REACTIONS (12)
  - Medical device site swelling [None]
  - Adverse drug reaction [None]
  - Pain [None]
  - Therapeutic response decreased [None]
  - Loss of consciousness [None]
  - Implant site pain [None]
  - Dysgeusia [None]
  - Colon cancer [None]
  - Hypoaesthesia [None]
  - Dizziness [None]
  - Implant site extravasation [None]
  - Paraesthesia [None]
